FAERS Safety Report 15280966 (Version 2)
Quarter: 2020Q2

REPORT INFORMATION
  Report Type: Report from Study
  Country: CO (occurrence: CO)
  Receive Date: 20180815
  Receipt Date: 20200625
  Transmission Date: 20200713
  Serious: Yes (Hospitalization)
  Sender: FDA-Public Use
  Company Number: CO-BAYER-2018-148550

PATIENT
  Age: 81 Year
  Sex: Female

DRUGS (1)
  1. ADEMPAS [Suspect]
     Active Substance: RIOCIGUAT
     Indication: PULMONARY HYPERTENSION
     Dosage: 2.5 MG, Q8HR
     Route: 048
     Dates: start: 20180328, end: 20200605

REACTIONS (6)
  - Oxygen saturation decreased [Recovered/Resolved]
  - Respiratory distress [None]
  - Product availability issue [None]
  - Abdominal pain [Recovered/Resolved]
  - Product administration interrupted [Unknown]
  - Product use issue [None]

NARRATIVE: CASE EVENT DATE: 20180801
